FAERS Safety Report 16920612 (Version 1)
Quarter: 2019Q4

REPORT INFORMATION
  Report Type: Spontaneous
  Country: US (occurrence: US)
  Receive Date: 20191015
  Receipt Date: 20191015
  Transmission Date: 20200122
  Serious: Yes (Hospitalization)
  Sender: FDA-Public Use
  Company Number: US-TEVA-2019-US-1121661

PATIENT
  Age: 63 Year
  Sex: Female

DRUGS (5)
  1. PROMETHAZINE [Suspect]
     Active Substance: PROMETHAZINE HYDROCHLORIDE
     Indication: MIGRAINE
     Route: 065
  2. KETAMINE [Interacting]
     Active Substance: KETAMINE
     Indication: MIGRAINE
     Dosage: SUBANAESTHETIC KETAMINE INFUSION UP TO 45 MG/HOUR
     Route: 065
  3. DIHYDROERGOTAMINE MESILATE [Interacting]
     Active Substance: DIHYDROERGOTAMINE MESYLATE
     Indication: MIGRAINE
     Route: 042
  4. METHYLPREDNISOLONE. [Interacting]
     Active Substance: METHYLPREDNISOLONE
     Indication: MIGRAINE
     Route: 065
  5. VALPORATE [Interacting]
     Active Substance: VALPROATE SODIUM
     Indication: MIGRAINE
     Dosage: NUMBER OF DOSAGES: 1
     Route: 065

REACTIONS (3)
  - Reversible cerebral vasoconstriction syndrome [Recovered/Resolved]
  - Posterior reversible encephalopathy syndrome [Recovered/Resolved]
  - Drug interaction [Unknown]
